FAERS Safety Report 5219609-0 (Version None)
Quarter: 2007Q1

REPORT INFORMATION
  Report Type: 
  Country: None (occurrence: None)
  Receive Date: 20061201
  Receipt Date: 20060705
  Transmission Date: 20070707
  Serious: No
  Sender: FDA-Public Use
  Company Number: 2006PV016969

PATIENT
  Age: 49 Year
  Sex: Male
  Weight: 97.977 kg

DRUGS (4)
  1. BYETTA [Suspect]
     Indication: DIABETES MELLITUS
     Dosage: 10 MCG, BID; SC, 5 MCG; BID; SC
     Route: 058
     Dates: start: 20060601, end: 20060630
  2. BYETTA [Suspect]
     Indication: DIABETES MELLITUS
     Dosage: 10 MCG, BID; SC, 5 MCG; BID; SC
     Route: 058
     Dates: start: 20060701
  3. METFORMIN HCL [Concomitant]
  4. PRANDIN [Concomitant]

REACTIONS (3)
  - BLOOD GLUCOSE DECREASED [None]
  - BLOOD GLUCOSE INCREASED [None]
  - NAUSEA [None]
